FAERS Safety Report 8201269-8 (Version None)
Quarter: 2012Q1

REPORT INFORMATION
  Report Type: 
  Country: None (occurrence: None)
  Receive Date: 20120312
  Receipt Date: 20120307
  Transmission Date: 20120608
  Serious: Yes (Death)
  Sender: FDA-Public Use
  Company Number: PHEH2012US005317

PATIENT
  Sex: Female
  Weight: 57 kg

DRUGS (8)
  1. CYMBALTA [Concomitant]
     Dosage: DAILY
     Route: 048
  2. FLUTICASONE PROPIONATE [Concomitant]
     Dosage: DAILY
     Route: 048
  3. LAMICTAL [Concomitant]
     Dosage: DAILY
     Route: 048
  4. SIMVASTATIN [Concomitant]
     Dosage: DAILY
     Route: 048
  5. TRAMADOL HCL [Concomitant]
     Dosage: DAILY
     Route: 048
  6. RECLAST [Suspect]
     Dosage: UNK UKN, UNK
     Route: 042
     Dates: start: 20110301
  7. FOLIC ACID [Concomitant]
     Dosage: DAILY
     Route: 048
  8. PLAVIX [Concomitant]
     Dosage: DAILY
     Route: 048

REACTIONS (1)
  - DEATH [None]
